APPROVED DRUG PRODUCT: TELMISARTAN
Active Ingredient: TELMISARTAN
Strength: 80MG
Dosage Form/Route: TABLET;ORAL
Application: A090032 | Product #003 | TE Code: AB
Applicant: GLENMARK PHARMACEUTICALS LTD
Approved: Jul 7, 2014 | RLD: No | RS: No | Type: RX